FAERS Safety Report 22617269 (Version 1)
Quarter: 2023Q2

REPORT INFORMATION
  Report Type: Spontaneous
  Country: ZA (occurrence: ZA)
  Receive Date: 20230620
  Receipt Date: 20230620
  Transmission Date: 20230721
  Serious: Yes (Other)
  Sender: FDA-Public Use
  Company Number: ZA-SA-SAC20230615000657

PATIENT
  Age: 69 Year
  Sex: Male

DRUGS (4)
  1. ARAVA [Suspect]
     Active Substance: LEFLUNOMIDE
     Dosage: 20 MG QOD (ALTERNATE DAYS)
     Route: 065
     Dates: start: 20150922
  2. METHOTREXATE [Suspect]
     Active Substance: METHOTREXATE
     Dosage: 22.5 MG
     Route: 065
     Dates: start: 20150219
  3. SULFASALAZINE [Concomitant]
     Active Substance: SULFASALAZINE
     Dosage: 1000 MG 2X/DAY
     Route: 065
     Dates: start: 20150515, end: 20150618
  4. CHLOROQUINE [Concomitant]
     Active Substance: CHLOROQUINE
     Dosage: 200 MG, QD
     Route: 065
     Dates: start: 20150818

REACTIONS (2)
  - Rheumatoid arthritis [Unknown]
  - Platelet count decreased [Unknown]
